FAERS Safety Report 12252668 (Version 1)
Quarter: 2016Q2

REPORT INFORMATION
  Report Type: Spontaneous
  Country: US (occurrence: US)
  Receive Date: 20160411
  Receipt Date: 20160411
  Transmission Date: 20160815
  Serious: No
  Sender: FDA-Public Use
  Company Number: US-PFIZER INC-2016161473

PATIENT
  Sex: Female

DRUGS (4)
  1. SYNTHROID [Suspect]
     Active Substance: LEVOTHYROXINE SODIUM
  2. ARMOUR THYROID [Suspect]
     Active Substance: THYROID, PORCINE
  3. LEVOTHROID [Suspect]
     Active Substance: LEVOTHYROXINE SODIUM
  4. LEVOTHYROXINE SODIUM. [Suspect]
     Active Substance: LEVOTHYROXINE SODIUM

REACTIONS (3)
  - Hypoacusis [Unknown]
  - Drug hypersensitivity [Unknown]
  - Rash [Unknown]
